FAERS Safety Report 17508549 (Version 1)
Quarter: 2020Q1

REPORT INFORMATION
  Report Type: Report from Study
  Country: US (occurrence: US)
  Receive Date: 20200306
  Receipt Date: 20200306
  Transmission Date: 20200409
  Serious: Yes (Other)
  Sender: FDA-Public Use
  Company Number: NVSC2020US062946

PATIENT
  Age: 61 Year
  Sex: Female

DRUGS (1)
  1. TASIGNA [Suspect]
     Active Substance: NILOTINIB
     Indication: CHRONIC MYELOID LEUKAEMIA
     Dosage: 300 MG, BID
     Route: 048
     Dates: start: 201507, end: 201612

REACTIONS (8)
  - Muscle spasms [Unknown]
  - Dry skin [Unknown]
  - Optic neuritis [Unknown]
  - Visual impairment [Unknown]
  - Blood glucose increased [Unknown]
  - Dry eye [Unknown]
  - Pain of skin [Unknown]
  - Ulcerative keratitis [Not Recovered/Not Resolved]

NARRATIVE: CASE EVENT DATE: 201507
